FAERS Safety Report 8480097-2 (Version None)
Quarter: 2012Q2

REPORT INFORMATION
  Report Type: 
  Country: None (occurrence: None)
  Receive Date: 20120629
  Receipt Date: 20120618
  Transmission Date: 20120825
  Serious: Yes (Hospitalization)
  Sender: FDA-Public Use
  Company Number: US-ELI_LILLY_AND_COMPANY-US201206006658

PATIENT
  Age: 48 Year
  Sex: Female

DRUGS (2)
  1. CYMBALTA [Suspect]
     Indication: FIBROMYALGIA
     Dosage: 30 MG, UNKNOWN
     Route: 065
  2. CYMBALTA [Suspect]
     Dosage: 60 MG, UNKNOWN
     Route: 065
     Dates: end: 20120607

REACTIONS (8)
  - HOSPITALISATION [None]
  - SWELLING [None]
  - SPEECH DISORDER [None]
  - PARAESTHESIA [None]
  - INSOMNIA [None]
  - DEPRESSION [None]
  - DYSPHEMIA [None]
  - HEADACHE [None]
